FAERS Safety Report 24579525 (Version 1)
Quarter: 2024Q4

REPORT INFORMATION
  Report Type: Spontaneous
  Country: DE (occurrence: DE)
  Receive Date: 20241105
  Receipt Date: 20241105
  Transmission Date: 20250114
  Serious: Yes (Other)
  Sender: NOVARTIS
  Company Number: DE-002147023-NVSC2024DE191831

PATIENT
  Age: 59 Year
  Sex: Male
  Weight: 135 kg

DRUGS (15)
  1. LEQVIO [Suspect]
     Active Substance: INCLISIRAN SODIUM
     Indication: Hypercholesterolaemia
     Dosage: 1 DOSAGE FORM
     Route: 058
     Dates: start: 20240527, end: 20240830
  2. LEQVIO [Suspect]
     Active Substance: INCLISIRAN SODIUM
     Indication: Coronary artery disease
     Dosage: UNK
     Route: 058
     Dates: start: 20240830
  3. ASPIRIN [Concomitant]
     Active Substance: ASPIRIN
     Indication: Product used for unknown indication
     Dosage: 1 DOSAGE FORM (100), QD (1-0-0)
     Route: 065
  4. CANDESARTAN [Concomitant]
     Active Substance: CANDESARTAN
     Indication: Product used for unknown indication
     Dosage: 1 DOSAGE FORM (16), BID (1-0-1)
     Route: 065
  5. METOPROLOL [Concomitant]
     Active Substance: METOPROLOL
     Indication: Product used for unknown indication
     Dosage: UNK (95), BID (1-0-1/2)
     Route: 065
  6. AMLODIPINE [Concomitant]
     Active Substance: AMLODIPINE BESYLATE
     Indication: Product used for unknown indication
     Dosage: 1 DOSAGE FORM (5), BID (1-0-1)
     Route: 065
  7. DAPAGLIFLOZIN [Concomitant]
     Active Substance: DAPAGLIFLOZIN
     Indication: Product used for unknown indication
     Dosage: 1 DOSAGE FORM (10), QD (1-0-0)
     Route: 065
  8. METFORMIN [Concomitant]
     Active Substance: METFORMIN HYDROCHLORIDE
     Indication: Product used for unknown indication
     Dosage: 1 DOSAGE FORM (500), BID (1-0-1)
     Route: 065
  9. TORSEMIDE [Concomitant]
     Active Substance: TORSEMIDE
     Indication: Product used for unknown indication
     Dosage: 0.5 DOSAGE FORM (10), QD (?-0-0)
     Route: 065
  10. TESTOSTERONE [Concomitant]
     Active Substance: TESTOSTERONE
     Indication: Product used for unknown indication
     Dosage: UNK (16.2)
     Route: 065
  11. SYMBICORT [Concomitant]
     Active Substance: BUDESONIDE\FORMOTEROL FUMARATE DIHYDRATE
     Indication: Product used for unknown indication
     Dosage: UNK, PRN
     Route: 065
  12. METAMIZOLE [Concomitant]
     Active Substance: METAMIZOLE
     Indication: Product used for unknown indication
     Dosage: UNK (500), PRN
     Route: 065
  13. ATORVASTATIN [Concomitant]
     Active Substance: ATORVASTATIN
     Indication: Product used for unknown indication
     Dosage: UNK (80), QD (0-0-1)
     Route: 065
  14. EZETIMIBE [Concomitant]
     Active Substance: EZETIMIBE
     Indication: Product used for unknown indication
     Dosage: UNK
     Route: 065
  15. BEMPEDOIC ACID [Concomitant]
     Active Substance: BEMPEDOIC ACID
     Indication: Product used for unknown indication
     Dosage: UNK
     Route: 065
     Dates: start: 20230911

REACTIONS (7)
  - Injection site pruritus [Recovering/Resolving]
  - Injection site erythema [Recovering/Resolving]
  - Injection site rash [Recovering/Resolving]
  - Pustule [Recovering/Resolving]
  - Erythema [Recovering/Resolving]
  - Pruritus [Recovering/Resolving]
  - Feeling hot [Unknown]

NARRATIVE: CASE EVENT DATE: 20240901
